FAERS Safety Report 7771482-2 (Version None)
Quarter: 2011Q3

REPORT INFORMATION
  Report Type: 
  Country: None (occurrence: None)
  Receive Date: 20110922
  Receipt Date: 20110617
  Transmission Date: 20111222
  Serious: Yes (Hospitalization)
  Sender: FDA-Public Use
  Company Number: US-ASTRAZENECA-2011SE37065

PATIENT
  Age: 48 Year
  Sex: Female

DRUGS (3)
  1. SEROQUEL [Suspect]
     Route: 048
  2. CELEXA [Concomitant]
  3. SEROQUEL [Suspect]
     Indication: BIPOLAR DISORDER
     Dosage: DOSE FREQUENCY-TWO TIMES DAY, TOTAL DAILY DOSE- 400 MG.
     Route: 048
     Dates: start: 20090101

REACTIONS (5)
  - HYPERTENSION [None]
  - VOMITING [None]
  - HYPERHIDROSIS [None]
  - HEART RATE IRREGULAR [None]
  - DRUG DOSE OMISSION [None]
